FAERS Safety Report 15858659 (Version 1)
Quarter: 2019Q1

REPORT INFORMATION
  Report Type: Spontaneous
  Country: US (occurrence: US)
  Receive Date: 20190123
  Receipt Date: 20190123
  Transmission Date: 20190417
  Serious: Yes (Other)
  Sender: FDA-Public Use
  Company Number: None

PATIENT
  Sex: Female

DRUGS (2)
  1. NOT REPORTED [Concomitant]
  2. HUMIRA [Suspect]
     Active Substance: ADALIMUMAB
     Indication: LARGE INTESTINAL ULCER
     Dosage: ?          OTHER FREQUENCY:Q2W;?
     Route: 058

REACTIONS (1)
  - Arthropod bite [None]
